FAERS Safety Report 25764513 (Version 1)
Quarter: 2025Q3

REPORT INFORMATION
  Report Type: Spontaneous
  Country: US (occurrence: US)
  Receive Date: 20250905
  Receipt Date: 20250905
  Transmission Date: 20251020
  Serious: No
  Sender: DOMPE FARMACEUTICI
  Company Number: US-FARMAPROD-202502-0408

PATIENT
  Sex: Male
  Weight: 72.57 kg

DRUGS (10)
  1. OXERVATE [Suspect]
     Active Substance: CENEGERMIN-BKBJ
     Indication: Iridocyclitis
     Route: 047
     Dates: start: 20241230
  2. TIMOLOL MALEATE [Concomitant]
     Active Substance: TIMOLOL MALEATE
  3. LISINOPRIL [Concomitant]
     Active Substance: LISINOPRIL
  4. ASPIRIN [Concomitant]
     Active Substance: ASPIRIN
  5. POLYMYXIN B SULTRIMETHOPRIM [Concomitant]
  6. ATORVASTATIN CALCIUM [Concomitant]
     Active Substance: ATORVASTATIN CALCIUM
  7. METOPROLOL SUCCINATE [Concomitant]
     Active Substance: METOPROLOL SUCCINATE
  8. VITAMIN D3 [Concomitant]
     Active Substance: CHOLECALCIFEROL
  9. TRESIBA [Concomitant]
     Active Substance: INSULIN DEGLUDEC
  10. VITAMIN C [Concomitant]
     Active Substance: ASCORBIC ACID

REACTIONS (2)
  - Eye pain [Unknown]
  - Off label use [Unknown]
